FAERS Safety Report 10865860 (Version 1)
Quarter: 2015Q1

REPORT INFORMATION
  Report Type: Spontaneous
  Country: GB (occurrence: GB)
  Receive Date: 20150224
  Receipt Date: 20150224
  Transmission Date: 20150721
  Serious: Yes (Hospitalization)
  Sender: FDA-Public Use
  Company Number: GB-GALDERMA-GB15000604

PATIENT
  Age: 51 Year
  Sex: Female

DRUGS (2)
  1. MIRVASO [Suspect]
     Active Substance: BRIMONIDINE TARTRATE
     Indication: ROSACEA
     Dosage: 0.33%
     Route: 061
     Dates: start: 20140415, end: 20140418
  2. MIRVASO [Suspect]
     Active Substance: BRIMONIDINE TARTRATE
     Indication: ERYTHEMA

REACTIONS (6)
  - Decreased appetite [Unknown]
  - Pain of skin [Unknown]
  - Dizziness [Unknown]
  - Rash erythematous [Unknown]
  - Skin discolouration [Unknown]
  - Palpitations [Unknown]
